FAERS Safety Report 18647034 (Version 1)
Quarter: 2020Q4

REPORT INFORMATION
  Report Type: Spontaneous
  Country: US (occurrence: US)
  Receive Date: 20201222
  Receipt Date: 20201222
  Transmission Date: 20210114
  Serious: Yes (Hospitalization, Other)
  Sender: FDA-Public Use
  Company Number: US-CIPLA LTD.-2020US09236

PATIENT

DRUGS (19)
  1. VORICONAZOLE. [Suspect]
     Active Substance: VORICONAZOLE
     Dosage: 300 MILLIGRAM, BID
     Route: 048
  2. VORICONAZOLE. [Suspect]
     Active Substance: VORICONAZOLE
     Dosage: 0.5 MCG/ML
     Route: 065
  3. BUDESONIDE. [Suspect]
     Active Substance: BUDESONIDE
     Indication: ASTHMA
     Dosage: 90 MICROGRAM, BID, IN FIRAT TRIMISTER
  4. TRIMETHOPRIM SULFAMETHOXAZOLE [Suspect]
     Active Substance: SULFAMETHOXAZOLE\TRIMETHOPRIM
     Dosage: 160 MILLIGRAM, QD
     Route: 065
  5. VORICONAZOLE. [Suspect]
     Active Substance: VORICONAZOLE
     Indication: PNEUMOCYSTIS JIROVECII INFECTION
     Dosage: 6 MILLIGRAM/KILOGRAM, BID, FOR TWO DOSES
     Route: 042
  6. AMPHOTERICIN B. [Suspect]
     Active Substance: AMPHOTERICIN B
     Indication: PNEUMOCYSTIS JIROVECII INFECTION
     Dosage: 5 MILLIGRAM/KILOGRAM, QD, UPTO 16 DAYS
     Route: 042
  7. ISAVUCONAZONIUM SULFATE [Suspect]
     Active Substance: ISAVUCONAZONIUM SULFATE
     Dosage: 372 MILLIGRAM, QD
     Route: 065
  8. PREDNISONE. [Suspect]
     Active Substance: PREDNISONE
     Indication: ASTHMA
     Dosage: 40 MG DAILY FOR 5 DAYS
     Route: 065
  9. ITRACONAZOLE. [Suspect]
     Active Substance: ITRACONAZOLE
     Indication: ASPERGILLUS INFECTION
     Dosage: 0.25 MCG/ML
     Route: 065
  10. FLUTICASONE;SALMETEROL [Suspect]
     Active Substance: FLUTICASONE PROPIONATE\SALMETEROL XINAFOATE
     Indication: ASTHMA
     Dosage: 500 MCG/50 MCG, BID
  11. AMOXICILLIN + CLAV. POTASSIUM [Suspect]
     Active Substance: AMOXICILLIN\CLAVULANATE POTASSIUM
     Indication: ASTHMA
     Dosage: UNK, FOR 5 DAYS
     Route: 065
  12. TRIMETHOPRIM SULFAMETHOXAZOLE [Suspect]
     Active Substance: SULFAMETHOXAZOLE\TRIMETHOPRIM
     Dosage: 320 MILLIGRAM,
     Route: 048
  13. POSACONAZOLE [Suspect]
     Active Substance: POSACONAZOLE
     Indication: ASPERGILLUS INFECTION
     Dosage: 0.06 MCG/ ML
     Route: 065
  14. ISAVUCONAZONIUM SULFATE [Suspect]
     Active Substance: ISAVUCONAZONIUM SULFATE
     Indication: ASPERGILLUS INFECTION
     Dosage: 372 MILLIGRAM, TID, FOR 6 DOSES
     Route: 048
  15. SALBUTAMOL [Suspect]
     Active Substance: ALBUTEROL
     Indication: ASTHMA
     Dosage: 90 MICROGRAM, PRN, FIRST TRIMISTER
  16. TRIMETHOPRIM SULFAMETHOXAZOLE [Suspect]
     Active Substance: SULFAMETHOXAZOLE\TRIMETHOPRIM
     Indication: PNEUMOCYSTIS JIROVECII INFECTION
     Dosage: 15 MILLIGRAM/KILOGRAM, TID
     Route: 065
  17. CEFEPIME [Suspect]
     Active Substance: CEFEPIME HYDROCHLORIDE
     Indication: PNEUMOCYSTIS JIROVECII INFECTION
     Dosage: 2 GRAM, TID, EVERY 8 HOURS UP TO 48 HOURS
     Route: 042
  18. OSELTAMIVIR [Suspect]
     Active Substance: OSELTAMIVIR
     Indication: PNEUMOCYSTIS JIROVECII INFECTION
     Dosage: 75 MILLIGRAM, BID
     Route: 048
  19. FLUCONAZOLE. [Suspect]
     Active Substance: FLUCONAZOLE
     Indication: ASPERGILLUS INFECTION
     Dosage: }64 MCG/ML
     Route: 065

REACTIONS (2)
  - Exposure during pregnancy [Unknown]
  - Pneumocystis jirovecii infection [Recovered/Resolved]
